FAERS Safety Report 22161144 (Version 32)
Quarter: 2025Q2

REPORT INFORMATION
  Report Type: Report from Study
  Country: US (occurrence: US)
  Receive Date: 20230331
  Receipt Date: 20250402
  Transmission Date: 20250717
  Serious: Yes (Hospitalization, Other)
  Sender: TAKEDA
  Company Number: US-TAKEDA-2023TUS013744

PATIENT
  Age: 68 Year
  Sex: Female
  Weight: 118 kg

DRUGS (45)
  1. HUMAN IMMUNOGLOBULIN G [Suspect]
     Active Substance: HUMAN IMMUNOGLOBULIN G
     Indication: Immunodeficiency
     Dosage: 40 GRAM, Q4WEEKS
  2. HUMAN IMMUNOGLOBULIN G [Suspect]
     Active Substance: HUMAN IMMUNOGLOBULIN G
     Indication: Hypergammaglobulinaemia
  3. HUMAN IMMUNOGLOBULIN G [Suspect]
     Active Substance: HUMAN IMMUNOGLOBULIN G
     Indication: Immune system disorder
  4. DUPIXENT [Suspect]
     Active Substance: DUPILUMAB
     Indication: Product used for unknown indication
  5. ACETAMINOPHEN [Concomitant]
     Active Substance: ACETAMINOPHEN
  6. EPINEPHRINE [Concomitant]
     Active Substance: EPINEPHRINE
  7. METFORMIN HYDROCHLORIDE [Concomitant]
     Active Substance: METFORMIN HYDROCHLORIDE
  8. DULOXETINE HYDROCHLORIDE [Concomitant]
     Active Substance: DULOXETINE HYDROCHLORIDE
  9. ATORVASTATIN CALCIUM [Concomitant]
     Active Substance: ATORVASTATIN CALCIUM
  10. SPIRIVA [Concomitant]
     Active Substance: TIOTROPIUM BROMIDE MONOHYDRATE
  11. AZATHIOPRINE [Concomitant]
     Active Substance: AZATHIOPRINE
  12. SODIUM CHLORIDE [Concomitant]
     Active Substance: SODIUM CHLORIDE
  13. LASIX [Concomitant]
     Active Substance: FUROSEMIDE
  14. TEMAZEPAM [Concomitant]
     Active Substance: TEMAZEPAM
  15. CLONAZEPAM [Concomitant]
     Active Substance: CLONAZEPAM
  16. GUAIFENESIN [Concomitant]
     Active Substance: GUAIFENESIN
  17. CYCLOSPORINE [Concomitant]
     Active Substance: CYCLOSPORINE
  18. INFLIXIMAB [Concomitant]
     Active Substance: INFLIXIMAB
  19. DOXYCYCLINE HYCLATE [Concomitant]
     Active Substance: DOXYCYCLINE HYCLATE
  20. LURASIDONE HYDROCHLORIDE [Concomitant]
     Active Substance: LURASIDONE HYDROCHLORIDE
  21. LIDOCAINE [Concomitant]
     Active Substance: LIDOCAINE
  22. LEVOTHYROXINE SODIUM [Concomitant]
     Active Substance: LEVOTHYROXINE SODIUM
  23. OXYGEN [Concomitant]
     Active Substance: OXYGEN
  24. BACITRACIN [Concomitant]
     Active Substance: BACITRACIN
  25. DIPHENHYDRAMINE HYDROCHLORIDE [Concomitant]
     Active Substance: DIPHENHYDRAMINE HYDROCHLORIDE
  26. VITAMINS [Concomitant]
     Active Substance: VITAMINS
  27. MINIPRESS [Concomitant]
     Active Substance: PRAZOSIN HYDROCHLORIDE
  28. OMEPRAZOLE [Concomitant]
     Active Substance: OMEPRAZOLE
  29. MYRBETRIQ [Concomitant]
     Active Substance: MIRABEGRON
  30. LACTOBACILLUS ACIDOPHILUS [Concomitant]
     Active Substance: LACTOBACILLUS ACIDOPHILUS
  31. BENZONATATE [Concomitant]
     Active Substance: BENZONATATE
  32. SIMETHICONE (DIMETHICONE) [Concomitant]
     Active Substance: DIMETHICONE
  33. HYDROXYZINE HYDROCHLORIDE [Concomitant]
     Active Substance: HYDROXYZINE HYDROCHLORIDE
  34. DOCUSATE SODIUM [Concomitant]
     Active Substance: DOCUSATE SODIUM
  35. ARIPIPRAZOLE [Concomitant]
     Active Substance: ARIPIPRAZOLE
  36. HEPARIN [Concomitant]
     Active Substance: HEPARIN SODIUM
  37. BREO ELLIPTA [Concomitant]
     Active Substance: FLUTICASONE FUROATE\VILANTEROL TRIFENATATE
  38. MIRTAZAPINE [Concomitant]
     Active Substance: MIRTAZAPINE
  39. BACTRIM [Concomitant]
     Active Substance: SULFAMETHOXAZOLE\TRIMETHOPRIM
  40. VITAMIN C [Concomitant]
     Active Substance: ASCORBIC ACID
  41. MACROBID [Concomitant]
     Active Substance: NITROFURANTOIN\NITROFURANTOIN MONOHYDRATE
  42. MUPIROCIN [Concomitant]
     Active Substance: MUPIROCIN
  43. DIPHENHYDRAMINE [Concomitant]
     Active Substance: DIPHENHYDRAMINE
  44. PREDNISONE [Concomitant]
     Active Substance: PREDNISONE
  45. LINZESS [Concomitant]
     Active Substance: LINACLOTIDE

REACTIONS (37)
  - Pneumonia [Unknown]
  - Urinary tract infection [Not Recovered/Not Resolved]
  - Gastrointestinal fungal infection [Unknown]
  - Fungal pharyngitis [Unknown]
  - Pancreatic cyst [Unknown]
  - Gastrointestinal candidiasis [Unknown]
  - Basal cell carcinoma [Unknown]
  - Urinary retention [Unknown]
  - Pancreatitis [Unknown]
  - Lower respiratory tract infection [Unknown]
  - Drug hypersensitivity [Unknown]
  - Respiratory tract infection [Not Recovered/Not Resolved]
  - Fungal infection [Unknown]
  - Viral infection [Unknown]
  - Pharyngitis [Unknown]
  - Fall [Unknown]
  - Infection [Unknown]
  - Wound infection [Unknown]
  - Pharyngitis streptococcal [Not Recovered/Not Resolved]
  - Blood urine present [Unknown]
  - Ear infection [Unknown]
  - Device alarm issue [Unknown]
  - Cellulitis [Unknown]
  - Productive cough [Unknown]
  - Bronchitis [Unknown]
  - Gastroenteritis viral [Unknown]
  - Respiratory tract congestion [Unknown]
  - Sinusitis [Unknown]
  - Oral candidiasis [Unknown]
  - Influenza [Recovering/Resolving]
  - Infusion site induration [Unknown]
  - Night sweats [Unknown]
  - Rhinorrhoea [Unknown]
  - Infusion site discomfort [Unknown]
  - Diarrhoea [Unknown]
  - Pruritus [Unknown]
  - Headache [Recovered/Resolved]

NARRATIVE: CASE EVENT DATE: 20230528
